FAERS Safety Report 9379428 (Version 2)
Quarter: 2013Q3

REPORT INFORMATION
  Report Type: Spontaneous
  Country: US (occurrence: US)
  Receive Date: 20130702
  Receipt Date: 20130709
  Transmission Date: 20140515
  Serious: No
  Sender: FDA-Public Use
  Company Number: US-PFIZER INC-2013183399

PATIENT
  Age: 58 Year
  Sex: Female
  Weight: 68.93 kg

DRUGS (6)
  1. CELEBREX [Suspect]
     Indication: RHEUMATOID ARTHRITIS
     Dosage: AN UNKNOWN DOSE 2-3 TIMES A DAY
     Dates: start: 201202, end: 201204
  2. CELEBREX [Suspect]
     Indication: PAIN
  3. CELEBREX [Suspect]
     Indication: ARTHRITIS
  4. CELEBREX [Suspect]
     Indication: JOINT STIFFNESS
  5. TYLENOL [Suspect]
     Indication: PAIN
     Dosage: 500 MG, 3X/DAY
     Dates: start: 201301
  6. TYLENOL [Suspect]
     Indication: INFLAMMATION

REACTIONS (4)
  - Drug ineffective [Unknown]
  - Pain [Not Recovered/Not Resolved]
  - Inflammation [Not Recovered/Not Resolved]
  - Somnolence [Unknown]
